FAERS Safety Report 6258918-3 (Version None)
Quarter: 2009Q3

REPORT INFORMATION
  Report Type: 
  Country: None (occurrence: None)
  Receive Date: 20090702
  Receipt Date: 20090622
  Transmission Date: 20100115
  Serious: Yes (Hospitalization)
  Sender: FDA-Public Use
  Company Number: 2009AP002525

PATIENT
  Age: 77 Year
  Sex: Female

DRUGS (7)
  1. OMEPRAZOLE [Suspect]
     Indication: GASTROOESOPHAGEAL REFLUX DISEASE
     Dosage: 40 MG; QD; PO
     Route: 048
     Dates: start: 20090612, end: 20090620
  2. FLUOXETINE HYDROCHLORIDE [Concomitant]
  3. METFORMIN HYDROCHLORIDE [Concomitant]
  4. FOLIC ACID [Concomitant]
  5. LEVOTHYROXINE SODIUM [Concomitant]
  6. VALSARTAN [Concomitant]
  7. METOCLOPRAMIDE [Concomitant]

REACTIONS (1)
  - RASH PRURITIC [None]
